FAERS Safety Report 9233914 (Version 3)
Quarter: 2013Q3

REPORT INFORMATION
  Report Type: Spontaneous
  Country: US (occurrence: US)
  Receive Date: 20130416
  Receipt Date: 20130702
  Transmission Date: 20140515
  Serious: Yes (Other)
  Sender: FDA-Public Use
  Company Number: US-PFIZER INC-2013115253

PATIENT
  Age: 60 Year
  Sex: Male
  Weight: 63.95 kg

DRUGS (12)
  1. DETROL LA [Suspect]
     Indication: HYPERTONIC BLADDER
     Dosage: 4 MG, 1X/DAY
     Dates: start: 2012
  2. DETROL LA [Suspect]
     Dosage: 4 MG, 2X/DAY
     Route: 048
     Dates: end: 201303
  3. DETROL LA [Suspect]
     Dosage: 4 MG, 2X/DAY
     Dates: start: 2013, end: 201306
  4. ADDERALL [Concomitant]
     Indication: ATTENTION DEFICIT/HYPERACTIVITY DISORDER
     Dosage: 20 MG IN MORNING AND 30 MG IN AFTERNOON
  5. ADDERALL [Concomitant]
     Indication: ATTENTION DEFICIT/HYPERACTIVITY DISORDER
  6. ZYPREXA [Concomitant]
     Indication: BIPOLAR DISORDER
     Dosage: 5 MG, 1X/DAY
  7. CARBAMAZEPINE [Concomitant]
     Indication: CONVULSION
     Dosage: UNK
  8. FLUTICASONE [Concomitant]
     Indication: HYPERSENSITIVITY
     Dosage: UNK
     Route: 045
  9. LEVOTHYROXINE [Concomitant]
     Indication: THYROID DISORDER
     Dosage: 50 UG, 1X/DAY
  10. SIMVASTATIN [Concomitant]
     Indication: BLOOD CHOLESTEROL INCREASED
     Dosage: 20 MG, 1X/DAY
  11. EPITOL [Concomitant]
     Indication: BIPOLAR DISORDER
     Dosage: 200 MG, 2X/DAY
  12. SULINDAC [Concomitant]
     Indication: BACK PAIN
     Dosage: 200 MG, 2X/DAY

REACTIONS (8)
  - Joint injury [Unknown]
  - Limb discomfort [Unknown]
  - Back disorder [Not Recovered/Not Resolved]
  - Blood cholesterol increased [Unknown]
  - Sleep disorder [Not Recovered/Not Resolved]
  - Pollakiuria [Not Recovered/Not Resolved]
  - Drug ineffective [Unknown]
  - Incorrect dose administered [Unknown]
